FAERS Safety Report 11118123 (Version 1)
Quarter: 2015Q2

REPORT INFORMATION
  Report Type: Spontaneous
  Country: US (occurrence: US)
  Receive Date: 20150518
  Receipt Date: 20150518
  Transmission Date: 20150821
  Serious: Yes (Hospitalization, Other)
  Sender: FDA-Public Use
  Company Number: US-ROCHE-1577633

PATIENT
  Sex: Female
  Weight: 72.64 kg

DRUGS (7)
  1. AZOR (UNITED STATES) [Concomitant]
     Indication: HYPERTENSION
  2. EFFEXOR [Concomitant]
     Active Substance: VENLAFAXINE HYDROCHLORIDE
  3. BISOPROLOL/HYDROCHLOROTHIAZIDE [Concomitant]
     Active Substance: BISOPROLOL FUMARATE\HYDROCHLOROTHIAZIDE
     Indication: HYPERTENSION
  4. ASPIRIN. [Concomitant]
     Active Substance: ASPIRIN
  5. ATORVASTATIN [Concomitant]
     Active Substance: ATORVASTATIN
     Indication: BLOOD CHOLESTEROL
  6. AVASTIN [Suspect]
     Active Substance: BEVACIZUMAB
     Indication: OVARIAN CANCER
     Route: 042
     Dates: end: 2012
  7. PLAVIX [Concomitant]
     Active Substance: CLOPIDOGREL BISULFATE

REACTIONS (9)
  - Pancreatitis [Recovered/Resolved]
  - Abscess [Recovered/Resolved]
  - Recurrent cancer [Recovered/Resolved]
  - Headache [Recovered/Resolved]
  - Bile duct obstruction [Recovered/Resolved]
  - Epistaxis [Recovered/Resolved]
  - Bile duct stone [Recovered/Resolved]
  - Gallbladder disorder [Recovered/Resolved]
  - Hypertension [Unknown]

NARRATIVE: CASE EVENT DATE: 2010
